FAERS Safety Report 7494426-X (Version None)
Quarter: 2011Q2

REPORT INFORMATION
  Report Type: 
  Country: None (occurrence: None)
  Receive Date: 20110520
  Receipt Date: 20110518
  Transmission Date: 20111010
  Serious: Yes (Other)
  Sender: FDA-Public Use
  Company Number: AU-PFIZER INC-2011108351

PATIENT
  Age: 45 Year
  Sex: Female
  Weight: 152 kg

DRUGS (7)
  1. LIPITOR [Concomitant]
     Dosage: 20 MG, 1X/DAY
     Route: 048
  2. MINAX [Concomitant]
  3. RABEPRAZOLE SODIUM [Concomitant]
     Dosage: 20 MG, 1X/DAY
     Route: 048
  4. VARENICLINE TARTRATE [Suspect]
     Indication: TOBACCO USER
     Dosage: 1 MG, 1X/DAY
     Route: 048
     Dates: start: 20110414, end: 20110417
  5. IRBESARTAN + HYDROCHLOROTHIAZIDE [Concomitant]
     Dosage: UNK
  6. METFORMIN HCL [Concomitant]
  7. PAROXETINE [Concomitant]

REACTIONS (3)
  - HYPERTENSION [None]
  - AGITATION [None]
  - TACHYCARDIA [None]
